FAERS Safety Report 4778029-3 (Version None)
Quarter: 2005Q3

REPORT INFORMATION
  Report Type: 
  Country: None (occurrence: None)
  Receive Date: 20050921
  Receipt Date: 20050905
  Transmission Date: 20060218
  Serious: Yes (Hospitalization)
  Sender: FDA-Public Use
  Company Number: DSA_26956_2005

PATIENT
  Age: 63 Year
  Sex: Male

DRUGS (3)
  1. TAVOR [Suspect]
     Dosage: 36 MG PO
     Route: 048
     Dates: start: 20050903, end: 20050904
  2. VIAGRA [Suspect]
     Dosage: 200 MG PO
     Route: 048
     Dates: start: 20050903, end: 20050904
  3. UNSPECIFIED DRUG [Suspect]
     Dosage: DF PO
     Route: 048
     Dates: start: 20050903, end: 20050904

REACTIONS (4)
  - FALL [None]
  - INTENTIONAL MISUSE [None]
  - MULTIPLE DRUG OVERDOSE [None]
  - SUBDURAL HAEMATOMA [None]
